FAERS Safety Report 8364203-6 (Version None)
Quarter: 2012Q2

REPORT INFORMATION
  Report Type: 
  Country: None (occurrence: None)
  Receive Date: 20120516
  Receipt Date: 20120507
  Transmission Date: 20120825
  Serious: Yes (Other)
  Sender: FDA-Public Use
  Company Number: US-JNJFOC-20120411654

PATIENT
  Sex: Female
  Weight: 63.5 kg

DRUGS (3)
  1. LEVOFLOXACIN [Suspect]
     Indication: LUNG INFECTION
     Route: 048
     Dates: start: 20120402, end: 20120401
  2. LEVOFLOXACIN [Suspect]
     Dosage: FOR A TOTAL OF 10 DAYS
     Route: 048
     Dates: start: 20120401, end: 20120401
  3. SYNTHROID [Concomitant]
     Indication: THYROID DISORDER
     Route: 048

REACTIONS (7)
  - PAIN [None]
  - FATIGUE [None]
  - VOMITING [None]
  - CHILLS [None]
  - INSOMNIA [None]
  - TREATMENT NONCOMPLIANCE [None]
  - MYALGIA [None]
